FAERS Safety Report 8313034-1 (Version None)
Quarter: 2012Q2

REPORT INFORMATION
  Report Type: 
  Country: None (occurrence: None)
  Receive Date: 20120426
  Receipt Date: 20120417
  Transmission Date: 20120825
  Serious: Yes (Other)
  Sender: FDA-Public Use
  Company Number: US-PERRIGO-11US011299

PATIENT
  Sex: Female
  Weight: 96.599 kg

DRUGS (3)
  1. HUMALOG [Concomitant]
     Indication: DIABETES MELLITUS
     Dosage: 30 UNITS EVERY AM, 30 UNITS EVERY PM
     Route: 058
  2. POTASSIUM CHLORIDE [Concomitant]
     Indication: HYPOKALAEMIA
     Dosage: 1 TABLET, QD
     Route: 048
  3. IBUPROFEN [Suspect]
     Indication: HEADACHE
     Dosage: 400MG APPROXIMATELY EVERY 5 HOURS
     Route: 048
     Dates: start: 20111215, end: 20111215

REACTIONS (6)
  - SOMNOLENCE [None]
  - DISTURBANCE IN ATTENTION [None]
  - VOMITING [None]
  - DRUG INEFFECTIVE [None]
  - DIZZINESS [None]
  - LOSS OF CONSCIOUSNESS [None]
